FAERS Safety Report 6823148-0 (Version None)
Quarter: 2010Q3

REPORT INFORMATION
  Report Type: 
  Country: None (occurrence: None)
  Receive Date: 20100708
  Receipt Date: 20100623
  Transmission Date: 20110219
  Serious: Yes (Hospitalization)
  Sender: FDA-Public Use
  Company Number: DE-MEDIMMUNE-MEDI-0011390

PATIENT
  Sex: Female
  Weight: 6.72 kg

DRUGS (3)
  1. SYNAGIS [Suspect]
     Dates: start: 20090929, end: 20100305
  2. SYNAGIS [Suspect]
     Dates: start: 20100402, end: 20100504
  3. MONTELUKAST [Concomitant]
     Dates: start: 20100528

REACTIONS (14)
  - ABNORMAL FAECES [None]
  - BRONCHITIS [None]
  - CONJUNCTIVITIS [None]
  - COUGH [None]
  - LEUKOCYTOSIS [None]
  - MIDDLE EAR EFFUSION [None]
  - OROPHARYNGEAL PAIN [None]
  - OTITIS MEDIA [None]
  - PNEUMONIA RESPIRATORY SYNCYTIAL VIRAL [None]
  - PYREXIA [None]
  - RESPIRATORY FAILURE [None]
  - RESPIRATORY SYNCYTIAL VIRUS INFECTION [None]
  - THROMBOCYTOPENIA [None]
  - VOMITING [None]
